FAERS Safety Report 9607054 (Version 1)
Quarter: 2013Q4

REPORT INFORMATION
  Report Type: Spontaneous
  Country: US (occurrence: US)
  Receive Date: 20131009
  Receipt Date: 20131009
  Transmission Date: 20140711
  Serious: Yes (Other)
  Sender: FDA-Public Use
  Company Number: US-BAYER-2013-120815

PATIENT
  Age: 74 Year
  Sex: Female
  Weight: 58.96 kg

DRUGS (3)
  1. ALKA-SELTZER PLUS COLD + COUGH FORMULA LIQUID GEL [Suspect]
     Indication: NASOPHARYNGITIS
     Dosage: 2 DF, ONCE
     Route: 048
     Dates: start: 20131003, end: 20131003
  2. LEVOTHYROXINE [Concomitant]
  3. ADVAIR [Concomitant]

REACTIONS (1)
  - Choking [Recovered/Resolved]
